FAERS Safety Report 19229031 (Version 1)
Quarter: 2021Q2

REPORT INFORMATION
  Report Type: Spontaneous
  Country: US (occurrence: US)
  Receive Date: 20210507
  Receipt Date: 20210507
  Transmission Date: 20210717
  Serious: Yes (Hospitalization)
  Sender: FDA-Public Use
  Company Number: US-PROCTER_AND_GAMBLE-PH21003675

PATIENT
  Age: 57 Year
  Sex: Female

DRUGS (5)
  1. CALCIUM CARBONATE, UNSPECIFIED [Suspect]
     Active Substance: CALCIUM CARBONATE
     Dosage: 1 GRAM, 3 /DAY (1 GM TID)
     Route: 048
  2. CALCITRIOL. [Suspect]
     Active Substance: CALCITRIOL
     Dosage: 0.5 MICROGRAM, 2 /DAY (0.5 MCG,BID)
  3. CHOLECALCIFEROL [Suspect]
     Active Substance: CHOLECALCIFEROL
     Dosage: UNK, DAILY,(10,000 UNITS DAILY)
  4. IRBESARTAN. [Concomitant]
     Active Substance: IRBESARTAN
     Dosage: 300 MILLIGRAM, DAILY
     Route: 048
  5. CHLORTHALIDONE. [Suspect]
     Active Substance: CHLORTHALIDONE
     Dosage: 25 MILLIGRAM, DAILY

REACTIONS (11)
  - Milk-alkali syndrome [Unknown]
  - Blood calcium increased [Recovered/Resolved]
  - Vomiting [Unknown]
  - Blood parathyroid hormone decreased [Unknown]
  - Calcium ionised increased [Recovered/Resolved]
  - Confusional state [Unknown]
  - Gait disturbance [Unknown]
  - Nausea [Unknown]
  - Blood creatinine increased [Recovered/Resolved]
  - Renal failure [Unknown]
  - Hypoaesthesia [Unknown]
